FAERS Safety Report 8258505-1 (Version None)
Quarter: 2012Q1

REPORT INFORMATION
  Report Type: 
  Country: None (occurrence: None)
  Receive Date: 20120322
  Receipt Date: 20120210
  Transmission Date: 20120608
  Serious: Yes (Hospitalization)
  Sender: FDA-Public Use
  Company Number: UTC-014178

PATIENT
  Age: 50 Year
  Sex: Female
  Weight: 62.7 kg

DRUGS (4)
  1. DIURETICS (DIURETICS) [Concomitant]
  2. ADCIRCA [Concomitant]
  3. TYVASO [Suspect]
     Indication: PULMONARY ARTERIAL HYPERTENSION
     Dosage: 120 MCG, (30 MCG, 4 IN 1 D), INHALATION
     Route: 055
     Dates: start: 20110722
  4. TRACLEER [Concomitant]

REACTIONS (1)
  - INTESTINAL OBSTRUCTION [None]
